FAERS Safety Report 10043369 (Version 1)
Quarter: 2014Q1

REPORT INFORMATION
  Report Type: Spontaneous
  Country: US (occurrence: US)
  Receive Date: 20140328
  Receipt Date: 20140328
  Transmission Date: 20141002
  Serious: Yes (Hospitalization)
  Sender: FDA-Public Use
  Company Number: US-BAYER-2014-045386

PATIENT
  Age: 32 Year
  Sex: Female
  Weight: 82.09 kg

DRUGS (13)
  1. YASMIN [Suspect]
  2. CYMBALTA [Concomitant]
     Dosage: 30-60MG
  3. REGLAN [Concomitant]
     Route: 042
  4. TORADOL [Concomitant]
     Route: 042
  5. DILAUDID [Concomitant]
     Route: 042
  6. TRAMADOL [Concomitant]
  7. TRAMADOL [Concomitant]
  8. VICODIN [Concomitant]
  9. MECLIZINE [Concomitant]
  10. VALIUM [Concomitant]
  11. PERCOCET [Concomitant]
  12. MORPHINE [Concomitant]
  13. METHADONE [Concomitant]

REACTIONS (1)
  - Pulmonary embolism [Recovered/Resolved]
